FAERS Safety Report 9242698 (Version 2)
Quarter: 2013Q2

REPORT INFORMATION
  Report Type: Spontaneous
  Country: US (occurrence: US)
  Receive Date: 20130419
  Receipt Date: 20130508
  Transmission Date: 20140414
  Serious: Yes (Other)
  Sender: FDA-Public Use
  Company Number: PHEH2013US008281

PATIENT
  Age: 68 Year
  Sex: Female
  Weight: 74.83 kg

DRUGS (22)
  1. LESCOL [Suspect]
     Indication: BLOOD CHOLESTEROL INCREASED
     Dosage: UNK UKN, UNK
  2. LIPITOR [Suspect]
     Indication: BLOOD CHOLESTEROL INCREASED
     Dosage: UNK UKN, UNK
  3. ZOCOR [Suspect]
     Indication: BLOOD CHOLESTEROL INCREASED
     Dosage: UNK UKN, UNK
  4. MEVACOR [Suspect]
     Indication: BLOOD CHOLESTEROL INCREASED
     Dosage: UNK UKN, UNK
  5. PROTONIX [Suspect]
     Indication: GASTROOESOPHAGEAL REFLUX DISEASE
     Dosage: 40 MG DAILY
     Dates: start: 2010
  6. ALBUTEROL [Concomitant]
     Indication: ASTHMA
     Dosage: UNKNOWN DOSE 2 PUFF 4 TIMES A DAY, QID
  7. LORAZEPAM [Concomitant]
     Indication: ANXIETY
     Dosage: 1 MG, TID
  8. METOPROLOL [Concomitant]
     Indication: BLOOD PRESSURE
     Dosage: 50 UNK, BID
  9. CYMBALTA [Concomitant]
     Indication: NEUROPATHY PERIPHERAL
     Dosage: 60 MG, QD
  10. CYMBALTA [Concomitant]
     Indication: DEPRESSION
  11. ASPIRIN [Concomitant]
     Indication: ANTICOAGULANT THERAPY
     Dosage: 81 MG, QD
  12. TRIAMTERENE AND HYDROCHLOROTHIAZID [Concomitant]
     Indication: BLOOD PRESSURE
     Dosage: 37.5/25 MG  QD
  13. TRIAMTERENE AND HYDROCHLOROTHIAZID [Concomitant]
     Indication: POLYURIA
  14. LEVOTHYROXINE [Concomitant]
     Indication: HYPOTHYROIDISM
     Dosage: 50 MG, QD
  15. LOTRISONE [Concomitant]
     Indication: RADIATION SKIN INJURY
     Dosage: UNK UKN, BID
  16. LOTRISONE [Concomitant]
     Indication: FUNGAL INFECTION
  17. PREMARIN [Concomitant]
     Indication: SKIN DISORDER
     Dosage: UNK UKN, QD
  18. AMITRIPTYLINE [Concomitant]
     Indication: DEPRESSION
     Dosage: 50 MG, QD
  19. FISH OIL [Concomitant]
     Indication: EYE DISORDER
     Dosage: 4 G, UNK
  20. VITAMIN D [Concomitant]
     Dosage: 5000 IU, QD
  21. VITAMIN E [Concomitant]
     Dosage: 1000 IU, QID
  22. VITAMIN B12 [Concomitant]
     Dosage: UNK UKN, QD

REACTIONS (3)
  - Retinal degeneration [Not Recovered/Not Resolved]
  - Movement disorder [Unknown]
  - Arthralgia [Unknown]
